FAERS Safety Report 5044140-5 (Version None)
Quarter: 2006Q2

REPORT INFORMATION
  Report Type: 
  Country: None (occurrence: None)
  Receive Date: 20060601
  Receipt Date: 20060310
  Transmission Date: 20061013
  Serious: No
  Sender: FDA-Public Use
  Company Number: US200603002866

PATIENT
  Age: 51 Year
  Sex: Male

DRUGS (4)
  1. CYMBALTA [Suspect]
     Indication: DEPRESSION
     Dosage: 30 MG, DAILY (1/D)
     Dates: start: 20050501, end: 20050101
  2. CYMBALTA [Suspect]
     Indication: DEPRESSION
     Dosage: 30 MG, DAILY (1/D)
     Dates: start: 20060101
  3. PROZAC [Suspect]
     Indication: DEPRESSION
     Dates: start: 19980101
  4. SEROQUEL [Concomitant]

REACTIONS (3)
  - DRUG INEFFECTIVE [None]
  - NIGHT BLINDNESS [None]
  - VISION BLURRED [None]
